FAERS Safety Report 16069449 (Version 1)
Quarter: 2019Q1

REPORT INFORMATION
  Report Type: Spontaneous
  Country: US (occurrence: US)
  Receive Date: 20190313
  Receipt Date: 20190313
  Transmission Date: 20190418
  Serious: No
  Sender: FDA-Public Use
  Company Number: US-SA-2019SA063640

PATIENT
  Sex: Female

DRUGS (4)
  1. SOMA [Concomitant]
     Active Substance: CARISOPRODOL
  2. LYRICA [Concomitant]
     Active Substance: PREGABALIN
     Indication: MULTIPLE SCLEROSIS
     Dosage: 200 MG, TID
     Route: 048
     Dates: start: 20180410
  3. AUBAGIO [Suspect]
     Active Substance: TERIFLUNOMIDE
  4. AVELOX [Concomitant]
     Active Substance: MOXIFLOXACIN HYDROCHLORIDE

REACTIONS (1)
  - Drug hypersensitivity [Unknown]
